FAERS Safety Report 4560314-1 (Version None)
Quarter: 2005Q1

REPORT INFORMATION
  Report Type: 
  Country: None (occurrence: None)
  Receive Date: 20050125
  Receipt Date: 20041206
  Transmission Date: 20050727
  Serious: Yes (Hospitalization, Other)
  Sender: FDA-Public Use
  Company Number: 200421985GDDC

PATIENT
  Age: 85 Year
  Sex: Female

DRUGS (8)
  1. KETEK [Suspect]
     Indication: PNEUMONIA
     Route: 048
     Dates: start: 20041108, end: 20040101
  2. WARFARIN [Suspect]
     Dosage: DOSE: UNK
     Route: 048
  3. METOPROLOL [Concomitant]
     Route: 048
  4. VALSARTAN [Concomitant]
     Route: 048
  5. NITRO-DUR [Concomitant]
     Route: 062
  6. NORVASC [Concomitant]
     Route: 048
  7. SYNTHROID [Concomitant]
     Route: 048
  8. LIPIDIL [Concomitant]
     Route: 048

REACTIONS (4)
  - DRUG INTERACTION [None]
  - HAEMOGLOBIN DECREASED [None]
  - INTERNATIONAL NORMALISED RATIO INCREASED [None]
  - PULMONARY HAEMORRHAGE [None]
